FAERS Safety Report 6608929 (Version 1)
Quarter: 2020Q3

REPORT INFORMATION
  Report Type: Report from Study
  Country: US (occurrence: US)
  Receive Date: 20080408
  Receipt Date: 20080408
  Transmission Date: 20201104
  Serious: Yes (Other)
  Sender: FDA-Public Use
  Company Number: US-ROCHE-555930

PATIENT
  Age: 61 Year
  Sex: Female

DRUGS (1)
  1. IBANDRONIC ACID. [Suspect]
     Active Substance: IBANDRONIC ACID
     Indication: OSTEOPOROSIS
     Route: 065
     Dates: start: 200703

REACTIONS (2)
  - Resorption bone increased [Not Recovered/Not Resolved]
  - Tooth loss [Unknown]
